FAERS Safety Report 9110226 (Version 7)
Quarter: 2013Q4

REPORT INFORMATION
  Report Type: Spontaneous
  Country: TH (occurrence: TH)
  Receive Date: 20130222
  Receipt Date: 20131025
  Transmission Date: 20140711
  Serious: Yes (Death, Other)
  Sender: FDA-Public Use
  Company Number: TH-ROCHE-1181609

PATIENT
  Age: 89 Year
  Sex: Male

DRUGS (14)
  1. MIRCERA [Suspect]
     Indication: NEPHROGENIC ANAEMIA
     Route: 058
     Dates: start: 20100828, end: 201212
  2. MINIDIAB [Concomitant]
     Dosage: 0.5 TABLET
     Route: 065
     Dates: start: 2010
  3. AVANDIA [Concomitant]
     Route: 065
     Dates: start: 2010
  4. LANTUS SOLOSTAR [Concomitant]
     Route: 065
     Dates: start: 2010
  5. FUROSEMIDE [Concomitant]
     Route: 065
     Dates: start: 2010
  6. FUROSEMIDE [Concomitant]
     Dosage: 1 TABLET
     Route: 065
     Dates: start: 2012
  7. FOLIC ACID [Concomitant]
     Dosage: 1 TABLET
     Route: 065
     Dates: start: 2010
  8. FOLIC ACID [Concomitant]
     Route: 065
     Dates: start: 2012
  9. ACTOS [Concomitant]
     Dosage: 0.5 TABLET
     Route: 065
     Dates: start: 2010
  10. BIOFLOR (SACCHAROMYCES CEREVISIAE) [Concomitant]
     Route: 065
     Dates: start: 2010
  11. ATARAX (THAILAND) [Concomitant]
     Route: 065
  12. JANUVIA [Concomitant]
     Dosage: 0.5 TABLET
     Route: 065
  13. OMEPRAZOL [Concomitant]
     Route: 065
  14. LANTUS SOLOSTAR [Concomitant]

REACTIONS (4)
  - Death [Fatal]
  - Aplasia pure red cell [Not Recovered/Not Resolved]
  - Cardiac failure congestive [Recovered/Resolved]
  - Respiratory failure [Recovered/Resolved]
